FAERS Safety Report 15351047 (Version 1)
Quarter: 2018Q3

REPORT INFORMATION
  Report Type: Report from Study
  Country: None (occurrence: GT)
  Receive Date: 20180905
  Receipt Date: 20180905
  Transmission Date: 20181010
  Serious: Yes (Hospitalization, Other)
  Sender: FDA-Public Use
  Company Number: GT-ABBVIE-18S-069-2473734-00

PATIENT
  Age: 54 Year
  Sex: Female

DRUGS (2)
  1. ZEMPLAR [Suspect]
     Active Substance: PARICALCITOL
     Dosage: 3 AMPOULLES PER WEEK
     Route: 042
     Dates: start: 201808
  2. ZEMPLAR [Suspect]
     Active Substance: PARICALCITOL
     Indication: CHRONIC KIDNEY DISEASE
     Dosage: 10 AMPOULLES PER WEEK
     Route: 042
     Dates: start: 20180505, end: 201808

REACTIONS (1)
  - Gastric operation [Recovering/Resolving]

NARRATIVE: CASE EVENT DATE: 20180813
